FAERS Safety Report 8007201-4 (Version None)
Quarter: 2011Q4

REPORT INFORMATION
  Report Type: 
  Country: None (occurrence: None)
  Receive Date: 20111227
  Receipt Date: 20111212
  Transmission Date: 20120403
  Serious: Yes (Other)
  Sender: FDA-Public Use
  Company Number: US-ENDO PHARMACEUTICALS INC.-OPER20110339

PATIENT
  Sex: Male

DRUGS (2)
  1. OPANA ER [Suspect]
     Indication: PAIN
     Route: 048
     Dates: start: 20111212
  2. OXYCONTIN [Concomitant]
     Indication: PAIN
     Dosage: 60 MG
     Route: 048

REACTIONS (1)
  - DRUG DISPENSING ERROR [None]
